FAERS Safety Report 25859928 (Version 2)
Quarter: 2025Q4

REPORT INFORMATION
  Report Type: Spontaneous
  Country: AU (occurrence: US)
  Receive Date: 20250929
  Receipt Date: 20251001
  Transmission Date: 20260118
  Serious: Yes (Hospitalization, Other)
  Sender: Kenvue
  Company Number: AU-KENVUE-20250911584

PATIENT
  Age: 13 Year
  Sex: Female

DRUGS (1)
  1. BENADRYL [Suspect]
     Active Substance: DIPHENHYDRAMINE HYDROCHLORIDE
     Indication: Euphoric mood
     Dosage: UNK
     Route: 065
     Dates: start: 202509

REACTIONS (3)
  - Intentional product misuse [Unknown]
  - Heart rate increased [Unknown]
  - Hallucination [Unknown]

NARRATIVE: CASE EVENT DATE: 20250901
